FAERS Safety Report 17127304 (Version 1)
Quarter: 2019Q4

REPORT INFORMATION
  Report Type: Spontaneous
  Country: DE (occurrence: DE)
  Receive Date: 20191209
  Receipt Date: 20191209
  Transmission Date: 20200122
  Serious: Yes (Other)
  Sender: FDA-Public Use
  Company Number: DE-BRISTOL-MYERS SQUIBB COMPANY-BMS-2019-115987

PATIENT
  Sex: Male

DRUGS (7)
  1. CLEXANE [Suspect]
     Active Substance: ENOXAPARIN SODIUM
     Indication: PRODUCT USED FOR UNKNOWN INDICATION
     Dosage: 1/0/1L
     Route: 065
  2. CANDESARTAN. [Concomitant]
     Active Substance: CANDESARTAN
     Indication: HYPERTENSION
     Dosage: 24 MG, DAILY (TWICE DAILY 16 MG IN THE MORNING AND 8 MG IN THE EVENING)
     Route: 048
  3. OXYGESIC [Suspect]
     Active Substance: OXYCODONE
     Indication: PRODUCT USED FOR UNKNOWN INDICATION
     Dosage: 5 MILLIGRAM, Q8H
     Route: 065
  4. XARELTO [Suspect]
     Active Substance: RIVAROXABAN
     Indication: PRODUCT USED FOR UNKNOWN INDICATION
     Dosage: UNK
     Route: 065
  5. MARCUMAR [Suspect]
     Active Substance: PHENPROCOUMON
     Indication: PRODUCT USED FOR UNKNOWN INDICATION
     Dosage: UNK
     Route: 065
  6. OXYGESIC [Suspect]
     Active Substance: OXYCODONE
     Indication: PAIN
     Dosage: 5 MG, BID, (STRENGTH 5MG) (1/0/1/, ONE IN THE MORNING AND ONE IN THE EVENING (AT 7 AM AND 7 PM)
     Route: 065
  7. APIXABAN [Suspect]
     Active Substance: APIXABAN
     Indication: PRODUCT USED FOR UNKNOWN INDICATION
     Dosage: UNK
     Route: 065

REACTIONS (16)
  - Dizziness [Unknown]
  - Drug withdrawal syndrome [Unknown]
  - Blood pressure increased [Unknown]
  - Deep vein thrombosis [Unknown]
  - Therapeutic product effect delayed [Unknown]
  - Product dose omission [Unknown]
  - Syncope [Unknown]
  - Hot flush [Unknown]
  - Drug ineffective [Unknown]
  - Impaired driving ability [Unknown]
  - Nervousness [Unknown]
  - Pulmonary embolism [Unknown]
  - Feeling abnormal [Unknown]
  - Chills [Unknown]
  - Coordination abnormal [Unknown]
  - Overdose [Unknown]
